FAERS Safety Report 5264509-3 (Version None)
Quarter: 2007Q1

REPORT INFORMATION
  Report Type: 
  Country: None (occurrence: None)
  Receive Date: 20061213
  Receipt Date: 20041229
  Transmission Date: 20070707
  Serious: Yes (Other)
  Sender: FDA-Public Use
  Company Number: 2004UW26222

PATIENT
  Sex: Female

DRUGS (7)
  1. IRESSA [Suspect]
     Indication: LUNG NEOPLASM MALIGNANT
     Dates: start: 20040701
  2. IRESSA [Suspect]
     Indication: LUNG NEOPLASM MALIGNANT
  3. METROGEL [Concomitant]
  4. TAMOXIFEN CITRATE [Concomitant]
  5. SYNTHROID [Concomitant]
  6. DYAZIDE [Concomitant]
  7. ACTONEL [Concomitant]

REACTIONS (7)
  - DRY SKIN [None]
  - HAIR COLOUR CHANGES [None]
  - MUSCLE SPASMS [None]
  - ONYCHOCLASIS [None]
  - RASH GENERALISED [None]
  - SKIN ATROPHY [None]
  - URTICARIA [None]
